FAERS Safety Report 5913996-3 (Version None)
Quarter: 2008Q4

REPORT INFORMATION
  Report Type: 
  Country: None (occurrence: None)
  Receive Date: 20081009
  Receipt Date: 20081003
  Transmission Date: 20090506
  Serious: Yes (Hospitalization)
  Sender: FDA-Public Use
  Company Number: US-BAYER-200830393NA

PATIENT
  Age: 68 Year
  Sex: Female

DRUGS (1)
  1. LEUKINE [Suspect]
     Indication: MYELODYSPLASTIC SYNDROME
     Dosage: TOTAL DAILY DOSE: 500 MG
     Dates: start: 20080616, end: 20080630

REACTIONS (1)
  - ABDOMINAL PAIN UPPER [None]
